FAERS Safety Report 6885294-5 (Version None)
Quarter: 2010Q3

REPORT INFORMATION
  Report Type: 
  Country: None (occurrence: None)
  Receive Date: 20100729
  Receipt Date: 20100729
  Transmission Date: 20110219
  Serious: Yes (Hospitalization)
  Sender: FDA-Public Use
  Company Number: None

PATIENT
  Age: 58 Year
  Sex: Male
  Weight: 113 kg

DRUGS (3)
  1. DILTIAZEM [Suspect]
     Indication: ATRIAL FIBRILLATION
     Dosage: 120 MG EVERY DAY PO
     Route: 048
     Dates: start: 20091001, end: 20100714
  2. DILTIAZEM [Suspect]
     Indication: HYPERTENSION
     Dosage: 120 MG EVERY DAY PO
     Route: 048
     Dates: start: 20091001, end: 20100714
  3. SORAFENIB [Suspect]
     Indication: HEPATIC NEOPLASM MALIGNANT
     Dosage: 200 MG BID PO
     Route: 048
     Dates: start: 20100711, end: 20100713

REACTIONS (2)
  - BRADYCARDIA [None]
  - CONFUSIONAL STATE [None]
